FAERS Safety Report 12933686 (Version 1)
Quarter: 2016Q4

REPORT INFORMATION
  Report Type: Report from Study
  Country: US (occurrence: US)
  Receive Date: 20161111
  Receipt Date: 20161111
  Transmission Date: 20170207
  Serious: Yes (Death, Hospitalization)
  Sender: FDA-Public Use
  Company Number: PHHY2015US128013

PATIENT
  Age: 77 Year
  Sex: Female

DRUGS (1)
  1. PROMACTA [Suspect]
     Active Substance: ELTROMBOPAG OLAMINE
     Indication: PLATELET COUNT DECREASED
     Dosage: 25 MG, QD
     Route: 048
     Dates: start: 20141101

REACTIONS (2)
  - Death [Fatal]
  - Fluid retention [Recovering/Resolving]

NARRATIVE: CASE EVENT DATE: 20150815
